FAERS Safety Report 16193057 (Version 1)
Quarter: 2019Q2

REPORT INFORMATION
  Report Type: Spontaneous
  Country: US (occurrence: US)
  Receive Date: 20190413
  Receipt Date: 20190413
  Transmission Date: 20190711
  Serious: No
  Sender: FDA-Public Use
  Company Number: US-TEVA-2019-US-1029877

PATIENT
  Sex: Female

DRUGS (1)
  1. METOPROLOL ER [Suspect]
     Active Substance: METOPROLOL SUCCINATE

REACTIONS (4)
  - Product substitution issue [Unknown]
  - Blood pressure increased [Unknown]
  - Product quality issue [Unknown]
  - Drug ineffective [Unknown]
